FAERS Safety Report 9692901 (Version 2)
Quarter: 2014Q1

REPORT INFORMATION
  Report Type: Report from Study
  Country: US (occurrence: US)
  Receive Date: 20131118
  Receipt Date: 20140106
  Transmission Date: 20141002
  Serious: Yes (Other)
  Sender: FDA-Public Use
  Company Number: US-ROCHE-1303297

PATIENT
  Sex: 0

DRUGS (4)
  1. RITUXIMAB [Suspect]
     Indication: B-CELL LYMPHOMA
     Dosage: UP TO 8 IN PHASE I AND PHASE II ON DAY 1
     Route: 042
  2. ALISERTIB [Suspect]
     Indication: B-CELL LYMPHOMA
     Dosage: DAYS 1-7, PHASE I
     Route: 065
  3. ALISERTIB [Suspect]
     Dosage: DAYS 1-7, PHASE II
     Route: 065
  4. VINCRISTINE [Suspect]
     Indication: B-CELL LYMPHOMA
     Dosage: ON DAYS 1 AND 8 OF 21-DAY CYCLE
     Route: 042

REACTIONS (6)
  - Thrombocytopenia [Unknown]
  - Bacteraemia [Unknown]
  - Stomatitis [Unknown]
  - Neutropenia [Unknown]
  - Fatigue [Unknown]
  - Leukopenia [Unknown]
